FAERS Safety Report 19143578 (Version 3)
Quarter: 2021Q3

REPORT INFORMATION
  Report Type: Spontaneous
  Country: US (occurrence: US)
  Receive Date: 20210416
  Receipt Date: 20210820
  Transmission Date: 20211014
  Serious: No
  Sender: FDA-Public Use
  Company Number: US-ORGANON-O2103USA003331

PATIENT
  Sex: Female
  Weight: 180.05 kg

DRUGS (1)
  1. NEXPLANON [Suspect]
     Active Substance: ETONOGESTREL
     Dosage: 1 DOSAGE FORM, ONCE, LEFT ARM
     Route: 059
     Dates: start: 20160122

REACTIONS (4)
  - No adverse event [Unknown]
  - Product dose omission issue [Unknown]
  - Complication associated with device [Unknown]
  - Complication of device removal [Unknown]
